FAERS Safety Report 8942376 (Version 2)
Quarter: 2012Q4

REPORT INFORMATION
  Report Type: 
  Country: US (occurrence: US)
  Receive Date: 20121204
  Receipt Date: 20121227
  Transmission Date: 20130627
  Serious: Yes (Other)
  Sender: FDA-Public Use
  Company Number: US-BAYER-2012-124791

PATIENT
  Age: 30 Year
  Sex: Female

DRUGS (10)
  1. MIRENA [Suspect]
     Indication: CONTRACEPTION
     Dosage: 20 mcg/24hr, CONT
     Route: 015
     Dates: start: 201105, end: 20121120
  2. BACTROBAN [Concomitant]
     Dosage: UNK
  3. ELMIRON [Concomitant]
     Dosage: UNK
  4. HYDROCHLOROTHIAZIDE [Concomitant]
     Dosage: UNK
  5. IBUPROFEN [Concomitant]
     Dosage: UNK
     Route: 048
  6. KLONOPIN [Concomitant]
     Dosage: UNK
     Route: 048
  7. LIDOCAINE [Concomitant]
     Dosage: UNK
  8. NORTRIPTYLINE HCL [Concomitant]
     Dosage: UNK
     Route: 048
  9. TOPICORT [Concomitant]
     Dosage: UNK
  10. TRIAMCINOLONE ACETONIDE [Concomitant]
     Dosage: UNK

REACTIONS (9)
  - Infection [None]
  - Chemical poisoning [None]
  - Procedural pain [None]
  - Ovarian cyst [None]
  - Vulva cyst [None]
  - Dyspareunia [Not Recovered/Not Resolved]
  - Dysmenorrhoea [Not Recovered/Not Resolved]
  - Pelvic pain [None]
  - Menstruation irregular [None]
